FAERS Safety Report 7709811-8 (Version None)
Quarter: 2011Q3

REPORT INFORMATION
  Report Type: 
  Country: None (occurrence: None)
  Receive Date: 20110825
  Receipt Date: 20110823
  Transmission Date: 20111222
  Serious: Yes (Other)
  Sender: FDA-Public Use
  Company Number: KR-UCBSA-024817

PATIENT
  Sex: Female

DRUGS (13)
  1. MOSAPRIDE [Concomitant]
     Indication: PROPHYLAXIS AGAINST GASTROINTESTINAL ULCER
     Route: 048
     Dates: start: 20080604
  2. CERTOLIZUMAB PEGOL [Suspect]
     Indication: RHEUMATOID ARTHRITIS
     Route: 058
     Dates: start: 20100705
  3. TEPRENONE [Concomitant]
     Indication: PROPHYLAXIS AGAINST GASTROINTESTINAL ULCER
     Route: 048
     Dates: start: 20100609
  4. PARAMACET [Concomitant]
     Indication: RHEUMATOID ARTHRITIS
     Dosage: 1 TABLET/BID
     Route: 048
     Dates: start: 20101129
  5. NABUMETON [Concomitant]
     Indication: RHEUMATOID ARTHRITIS
     Route: 048
     Dates: start: 20080325
  6. TEARS NATURAL FREE [Concomitant]
     Indication: DRY EYE
     Dosage: 1 DROP
     Route: 047
     Dates: start: 20101024
  7. TRAMADOL HCL [Concomitant]
     Indication: RHEUMATOID ARTHRITIS
     Route: 048
     Dates: start: 20100429
  8. NIFEDIPINE [Concomitant]
     Indication: HYPERTENSION
     Route: 048
     Dates: start: 20101125
  9. FOLIC ACID [Concomitant]
     Indication: DRUG TOXICITY PROPHYLAXIS
     Route: 048
     Dates: start: 20070418
  10. SODIUM HYALURONATE [Concomitant]
     Indication: DRY EYE
     Dosage: 1 DROP
     Route: 047
     Dates: start: 20101027
  11. METHYLPREDNISOLONE [Concomitant]
     Indication: RHEUMATOID ARTHRITIS
     Route: 048
     Dates: start: 20100116
  12. METHOTREXATE [Concomitant]
     Indication: RHEUMATOID ARTHRITIS
     Route: 048
     Dates: start: 20080325
  13. ISONIAZID [Concomitant]
     Indication: ANTIBIOTIC PROPHYLAXIS
     Route: 048
     Dates: start: 20100627

REACTIONS (2)
  - ABORTION INDUCED [None]
  - MATERNAL EXPOSURE DURING PREGNANCY [None]
